FAERS Safety Report 15347767 (Version 1)
Quarter: 2018Q3

REPORT INFORMATION
  Report Type: Spontaneous
  Country: FR (occurrence: FR)
  Receive Date: 20180904
  Receipt Date: 20180904
  Transmission Date: 20181010
  Serious: Yes (Other)
  Sender: FDA-Public Use
  Company Number: FR-PFIZER INC-2018351815

PATIENT
  Age: 72 Year
  Sex: Female

DRUGS (1)
  1. TOVIAZ [Suspect]
     Active Substance: FESOTERODINE FUMARATE
     Dosage: 1 DF, 2X/DAY (1 ON THE MORNING AND 1 IN THE EVENING)

REACTIONS (10)
  - Urinary tract infection [Unknown]
  - Sleep disorder due to general medical condition, insomnia type [Unknown]
  - Gastrointestinal motility disorder [Unknown]
  - Pain [Unknown]
  - Flatulence [Unknown]
  - Fatigue [Unknown]
  - Angina pectoris [Unknown]
  - Vomiting [Unknown]
  - Ageusia [Unknown]
  - Product use issue [Unknown]
